FAERS Safety Report 8070854-9 (Version None)
Quarter: 2012Q1

REPORT INFORMATION
  Report Type: 
  Country: None (occurrence: None)
  Receive Date: 20120125
  Receipt Date: 20120119
  Transmission Date: 20120608
  Serious: Yes (Other)
  Sender: FDA-Public Use
  Company Number: CH-GLAXOSMITHKLINE-B0776705A

PATIENT
  Age: 81 Year
  Sex: Female
  Weight: 71 kg

DRUGS (9)
  1. CALCIUM [Concomitant]
     Route: 042
     Dates: start: 20111125, end: 20111125
  2. ALOXI [Suspect]
     Indication: PREMEDICATION
     Dosage: .25MG PER DAY
     Route: 042
     Dates: start: 20111125, end: 20111125
  3. SYMBICORT [Concomitant]
     Route: 055
  4. CLEMASTINE FUMARATE [Suspect]
     Indication: PREMEDICATION
     Dosage: 2MG PER DAY
     Route: 042
     Dates: start: 20111125, end: 20111125
  5. VITAMIN D [Concomitant]
  6. SOLU-MEDROL [Suspect]
     Indication: PREMEDICATION
     Dosage: 125MG PER DAY
     Route: 042
     Dates: start: 20111125, end: 20111125
  7. ELOXATIN [Suspect]
     Indication: COLORECTAL CANCER
     Dosage: 100MG PER DAY
     Route: 042
     Dates: start: 20111125, end: 20111125
  8. MAGNESIUM SULFATE [Concomitant]
     Route: 042
     Dates: start: 20111125, end: 20111125
  9. ZANTAC [Suspect]
     Indication: PREMEDICATION
     Dosage: 50MG PER DAY
     Route: 042
     Dates: start: 20111125, end: 20111125

REACTIONS (6)
  - RASH [None]
  - ABDOMINAL PAIN [None]
  - HYPERTENSION [None]
  - CHEST DISCOMFORT [None]
  - MALAISE [None]
  - TYPE I HYPERSENSITIVITY [None]
